FAERS Safety Report 4574996-1 (Version None)
Quarter: 2005Q1

REPORT INFORMATION
  Report Type: 
  Country: None (occurrence: None)
  Receive Date: 20050208
  Receipt Date: 20050131
  Transmission Date: 20050727
  Serious: Yes (Other)
  Sender: FDA-Public Use
  Company Number: AU-ROCHE-393848

PATIENT
  Age: 32 Year
  Sex: Female
  Weight: 73 kg

DRUGS (2)
  1. XENICAL [Suspect]
     Indication: DRUG USE FOR UNKNOWN INDICATION
     Route: 048
     Dates: start: 20041115, end: 20050115
  2. MULTIVITAMIN NOS [Concomitant]
     Route: 048

REACTIONS (1)
  - ALOPECIA [None]
